FAERS Safety Report 23188897 (Version 1)
Quarter: 2023Q4

REPORT INFORMATION
  Report Type: Spontaneous
  Country: CN (occurrence: CN)
  Receive Date: 20231115
  Receipt Date: 20231115
  Transmission Date: 20240109
  Serious: Yes (Life-Threatening, Other)
  Sender: FDA-Public Use
  Company Number: CN-009507513-2311CHN002715

PATIENT
  Age: 73 Year
  Sex: Male
  Weight: 43 kg

DRUGS (2)
  1. CILASTATIN SODIUM\IMIPENEM [Suspect]
     Active Substance: CILASTATIN SODIUM\IMIPENEM
     Indication: Pneumonia
     Dosage: 1G, Q12H
     Route: 041
     Dates: start: 20230927, end: 20230929
  2. SODIUM CHLORIDE [Concomitant]
     Active Substance: SODIUM CHLORIDE
     Indication: Product used for unknown indication
     Dosage: 100ML, Q12H
     Route: 041
     Dates: start: 20230927, end: 20230929

REACTIONS (10)
  - Epilepsy [Recovering/Resolving]
  - Intracranial infection [Unknown]
  - Chronic kidney disease [Unknown]
  - Dementia [Unknown]
  - Pneumonia [Unknown]
  - Cerebral haemorrhage [Unknown]
  - General physical health deterioration [Unknown]
  - Metabolic disorder [Unknown]
  - Lethargy [Unknown]
  - Incorrect dose administered [Unknown]

NARRATIVE: CASE EVENT DATE: 20230101
